FAERS Safety Report 7408529-9 (Version None)
Quarter: 2011Q2

REPORT INFORMATION
  Report Type: 
  Country: None (occurrence: None)
  Receive Date: 20110412
  Receipt Date: 20110401
  Transmission Date: 20111010
  Serious: Yes (Other)
  Sender: FDA-Public Use
  Company Number: JP-PFIZER INC-2011079352

PATIENT
  Sex: Male

DRUGS (1)
  1. AMLODIN [Suspect]
     Dosage: 2.5 MG, UNK
     Route: 048
     Dates: start: 20070322, end: 20090323

REACTIONS (3)
  - ECZEMA [None]
  - SEASONAL ALLERGY [None]
  - FREQUENT BOWEL MOVEMENTS [None]
